FAERS Safety Report 8932946 (Version 1)
Quarter: 2012Q4

REPORT INFORMATION
  Report Type: Spontaneous
  Country: FR (occurrence: None)
  Receive Date: 20121119
  Receipt Date: 20121119
  Transmission Date: 20130627
  Serious: Yes (Hospitalization)
  Sender: FDA-Public Use
  Company Number: DKLU1084557

PATIENT
  Age: 83 Year
  Sex: Male

DRUGS (9)
  1. TRANXENE [Suspect]
     Indication: ANXIETY
     Dates: start: 20120531, end: 201206
  2. EBIXA [Suspect]
     Indication: DEMENTIA ALZHEIMER^S TYPE
  3. LERCAN [Suspect]
     Indication: HYPERTENSION
     Route: 048
  4. SERESTA [Suspect]
     Indication: ANXIETY
     Route: 048
     Dates: start: 201205
  5. MODOPAR [Suspect]
     Indication: PARKINSONISM
     Route: 048
  6. MODOPAR [Suspect]
     Indication: PARKINSONISM
     Route: 048
  7. EUPRESSYL [Suspect]
     Indication: HYPERTENSION
     Route: 048
  8. IMOVANE [Suspect]
     Indication: INSOMNIA
     Route: 048
  9. IXPRIM [Suspect]
     Indication: PAIN
     Dates: start: 201205, end: 201206

REACTIONS (4)
  - Balance disorder [None]
  - Balance disorder [None]
  - Fall [None]
  - Head injury [None]
